FAERS Safety Report 4289287-6 (Version None)
Quarter: 2004Q1

REPORT INFORMATION
  Report Type: 
  Country: None (occurrence: None)
  Receive Date: 20040203
  Receipt Date: 19990215
  Transmission Date: 20041129
  Serious: Yes (Other)
  Sender: FDA-Public Use
  Company Number: 62653

PATIENT
  Age: 78 Year
  Sex: Female
  Weight: 61.2356 kg

DRUGS (2)
  1. DORYX [Suspect]
     Indication: EAR INFECTION
     Dosage: 100 MG BID ORAL
     Route: 048
     Dates: start: 19990211, end: 19990215
  2. ALLEGRA [Concomitant]

REACTIONS (1)
  - PRURITUS [None]
